FAERS Safety Report 19721102 (Version 2)
Quarter: 2021Q3

REPORT INFORMATION
  Report Type: Report from Study
  Country: GB (occurrence: GB)
  Receive Date: 20210818
  Receipt Date: 20210904
  Transmission Date: 20211014
  Serious: Yes (Other)
  Sender: FDA-Public Use
  Company Number: NVSC2021GB180668

PATIENT
  Age: 46 Year
  Sex: Male

DRUGS (1)
  1. HYRIMOZ [Suspect]
     Active Substance: ADALIMUMAB-ADAZ
     Indication: COLITIS ULCERATIVE
     Dosage: 40 MG (160MG WK0, 80MG WK2, 40MG WK 4, EV2W)
     Route: 065
     Dates: start: 20210705

REACTIONS (5)
  - Swelling [Unknown]
  - Colitis ulcerative [Unknown]
  - Injection site bruising [Unknown]
  - Mood swings [Unknown]
  - Nasal congestion [Unknown]
